FAERS Safety Report 14969841 (Version 1)
Quarter: 2018Q2

REPORT INFORMATION
  Report Type: Spontaneous
  Country: US (occurrence: US)
  Receive Date: 20180512
  Receipt Date: 20180512
  Transmission Date: 20180711
  Serious: Yes (Hospitalization, Disabling, Other)
  Sender: FDA-Public Use
  Company Number: None

PATIENT
  Age: 59 Year
  Sex: Male
  Weight: 76.5 kg

DRUGS (4)
  1. LARIAM [Suspect]
     Active Substance: MEFLOQUINE HYDROCHLORIDE
     Indication: MALARIA PROPHYLAXIS
     Dosage: ?          QUANTITY:1 TABLET(S);OTHER FREQUENCY:WEEKLY;?
     Route: 048
     Dates: start: 20021129, end: 20030512
  2. VITAMIN B12 [Concomitant]
     Active Substance: CYANOCOBALAMIN
  3. ALBUTEROL. [Concomitant]
     Active Substance: ALBUTEROL
  4. VITAMIN D [Concomitant]
     Active Substance: CHOLECALCIFEROL

REACTIONS (3)
  - Vestibular disorder [None]
  - Vertigo [None]
  - Balance disorder [None]

NARRATIVE: CASE EVENT DATE: 20180330
